FAERS Safety Report 23791829 (Version 1)
Quarter: 2024Q2

REPORT INFORMATION
  Report Type: Spontaneous
  Country: RU (occurrence: RU)
  Receive Date: 20240429
  Receipt Date: 20240429
  Transmission Date: 20240716
  Serious: Yes (Other)
  Sender: FDA-Public Use
  Company Number: RU-PFIZER INC-PV202400054484

PATIENT
  Age: 66 Year
  Sex: Female

DRUGS (1)
  1. VYNDAQEL [Suspect]
     Active Substance: TAFAMIDIS MEGLUMINE
     Dosage: UNK

REACTIONS (6)
  - Blood pressure increased [Unknown]
  - Hypoaesthesia [Unknown]
  - Weight decreased [Unknown]
  - Skin ulcer [Not Recovered/Not Resolved]
  - Anal incontinence [Unknown]
  - Disease progression [Unknown]
